FAERS Safety Report 7639072-X (Version None)
Quarter: 2011Q3

REPORT INFORMATION
  Report Type: 
  Country: None (occurrence: None)
  Receive Date: 20110727
  Receipt Date: 20110720
  Transmission Date: 20111222
  Serious: Yes (Hospitalization, Other)
  Sender: FDA-Public Use
  Company Number: US-ASTRAZENECA-2008UW18896

PATIENT
  Age: 47 Year
  Sex: Female
  Weight: 89.8 kg

DRUGS (6)
  1. SEROQUEL [Suspect]
     Dosage: 25 MG TO 100 MG
     Route: 048
     Dates: start: 20050913
  2. PROZAC [Concomitant]
     Dates: start: 19890101
  3. LAMICTAL [Concomitant]
     Dates: start: 20050913
  4. NAPROSYN [Concomitant]
     Dates: start: 20021107
  5. LITHIUM CARBONATE [Concomitant]
     Dates: start: 19790101
  6. SEROQUEL [Suspect]
     Indication: BIPOLAR DISORDER
     Dosage: 25 TO 300 MG
     Route: 048
     Dates: start: 20021107

REACTIONS (3)
  - TYPE 2 DIABETES MELLITUS [None]
  - ANIMAL BITE [None]
  - ARTHROPATHY [None]
